FAERS Safety Report 15486572 (Version 1)
Quarter: 2018Q4

REPORT INFORMATION
  Report Type: Spontaneous
  Country: FR (occurrence: FR)
  Receive Date: 20181011
  Receipt Date: 20181011
  Transmission Date: 20190205
  Serious: Yes (Death, Life-Threatening)
  Sender: FDA-Public Use
  Company Number: FR-ROCHE-2196365

PATIENT
  Age: 26 Year
  Sex: Female
  Weight: 97 kg

DRUGS (13)
  1. ROCEPHINE [Suspect]
     Active Substance: CEFTRIAXONE SODIUM
     Indication: PYREXIA
     Route: 042
     Dates: start: 20180601, end: 20180603
  2. CELLCEPT [Suspect]
     Active Substance: MYCOPHENOLATE MOFETIL\MYCOPHENOLATE MOFETIL HYDROCHLORIDE
     Indication: PROPHYLAXIS AGAINST TRANSPLANT REJECTION
     Route: 042
     Dates: start: 20180605, end: 201807
  3. BUSILVEX [Suspect]
     Active Substance: BUSULFAN
     Indication: STEM CELL TRANSPLANT
     Dosage: 6 MG/ML
     Route: 042
     Dates: start: 20180526, end: 20180528
  4. ACICLOVIR [Suspect]
     Active Substance: ACYCLOVIR
     Indication: PYREXIA
     Route: 042
     Dates: start: 201806, end: 201806
  5. TRIFLUCAN [Suspect]
     Active Substance: FLUCONAZOLE
     Indication: PYREXIA
     Dosage: 2MG/ML
     Route: 042
     Dates: start: 201806, end: 201806
  6. DELURSAN [Suspect]
     Active Substance: URSODIOL
     Indication: DRUG TOXICITY PROPHYLAXIS
     Route: 048
     Dates: start: 201805, end: 201806
  7. FLUDARABINE PHOSPHATE. [Suspect]
     Active Substance: FLUDARABINE PHOSPHATE
     Indication: STEM CELL TRANSPLANT
     Route: 042
     Dates: start: 20180526, end: 20180529
  8. VANCOMYCINE [Suspect]
     Active Substance: VANCOMYCIN
     Indication: PYREXIA
     Route: 042
     Dates: start: 201806, end: 201806
  9. CICLOSPORINE [Suspect]
     Active Substance: CYCLOSPORINE
     Indication: PROPHYLAXIS AGAINST TRANSPLANT REJECTION
     Route: 042
     Dates: start: 20180605, end: 20180614
  10. FORTUM [Suspect]
     Active Substance: CEFTAZIDIME
     Indication: PYREXIA
     Route: 042
     Dates: start: 201806, end: 201806
  11. AMIKACINE [Suspect]
     Active Substance: AMIKACIN
     Indication: PYREXIA
     Route: 042
     Dates: start: 20180601, end: 20180603
  12. ENDOXAN [Suspect]
     Active Substance: CYCLOPHOSPHAMIDE
     Indication: PROPHYLAXIS AGAINST TRANSPLANT REJECTION
     Route: 042
     Dates: start: 20180603, end: 20180604
  13. THIOTEPA. [Suspect]
     Active Substance: THIOTEPA
     Indication: STEM CELL TRANSPLANT
     Route: 042
     Dates: start: 20180524, end: 20180525

REACTIONS (2)
  - Myocarditis [Recovering/Resolving]
  - Cardiac tamponade [Recovered/Resolved]

NARRATIVE: CASE EVENT DATE: 20180609
